FAERS Safety Report 7581559-2 (Version None)
Quarter: 2011Q2

REPORT INFORMATION
  Report Type: 
  Country: None (occurrence: None)
  Receive Date: 20110629
  Receipt Date: 20110622
  Transmission Date: 20111010
  Serious: Yes (Life-Threatening, Other)
  Sender: FDA-Public Use
  Company Number: PHHY2011DE45554

PATIENT
  Age: 70 Year
  Sex: Male

DRUGS (12)
  1. RASILEZ HCT [Suspect]
     Indication: BLOOD PRESSURE INCREASED
     Dosage: 300 MG ALIS AND 25 MG HCT, HALF DF DAILY
     Dates: start: 20110405, end: 20110506
  2. BISOPROLOL FUMARATE [Concomitant]
     Indication: HYPERTENSION
     Dosage: 10 MG, 1 IN MORNING AND HALF IN EVENING
  3. ALLOPURINOL [Concomitant]
     Dosage: 0.5 DF, QD
  4. XIPAMID [Concomitant]
     Dosage: 1 DF, QD
  5. VALSARTAN AND HYDROCHLOROTHIAZIDE [Suspect]
     Indication: BLOOD PRESSURE INCREASED
     Dosage: 160 MG OF VALSARTAN AND 25 MG OF HYDROCHLOROTHIAZIDE DAILY
     Dates: start: 20110101
  6. MOXONIDINE CORAX [Suspect]
     Indication: BLOOD PRESSURE INCREASED
     Dosage: 0.4 MG, BID
     Dates: start: 20110405, end: 20110506
  7. NOVODIGAL [Concomitant]
     Dosage: 1 DF, QD
  8. INSULIN [Concomitant]
  9. DIOVAN HCT [Suspect]
     Indication: BLOOD PRESSURE INCREASED
     Dosage: 160 MG OF VALSARTAN AND 25 MG OF HYDROCHLOROTHIAZIDE DAILY
     Dates: start: 20110114, end: 20110506
  10. DIBLOCIN [Concomitant]
     Dosage: 1 DF, QD
  11. MARCUMAR [Concomitant]
     Dosage: 1 DF, QD
  12. METFORMIN HCL [Concomitant]
     Dosage: 2 DF, BID

REACTIONS (3)
  - WEIGHT DECREASED [None]
  - PULMONARY OEDEMA [None]
  - GENERALISED OEDEMA [None]
